FAERS Safety Report 5178845-2 (Version None)
Quarter: 2006Q4

REPORT INFORMATION
  Report Type: 
  Country: None (occurrence: None)
  Receive Date: 20061208
  Receipt Date: 20061128
  Transmission Date: 20070319
  Serious: Yes (Other)
  Sender: FDA-Public Use
  Company Number: 2006146796

PATIENT
  Age: 71 Year
  Sex: Female
  Weight: 77.5651 kg

DRUGS (9)
  1. CHANTIX [Suspect]
     Indication: SMOKING CESSATION THERAPY
     Dosage: 0.5 MG ORAL
     Route: 048
     Dates: start: 20060929, end: 20061001
  2. VERAPAMIL [Concomitant]
  3. GLIPIZIDE [Concomitant]
  4. PROTONIX [Concomitant]
  5. B COMPLEX (NICOTINAMIDE, PYRIDOXINE HYDROCHLORIDE, RIBOFLAVIN, THIAMIN [Concomitant]
  6. OCUVITE               (ASCORBIC ACID, RETINOL, TOCOPHEROL) [Concomitant]
  7. ONE-A-DAY (ASCORBIC ACID, CYANOCOBALAMIN ERGOCALCIFEROL, NICOTINAMIDE, [Concomitant]
  8. STRESS B COMPLEX               (MINERALS NOS, VITAMINS NOS) [Concomitant]
  9. PRED FORTE [Concomitant]

REACTIONS (6)
  - CONSTIPATION [None]
  - DRUG HYPERSENSITIVITY [None]
  - FATIGUE [None]
  - HAEMATOCRIT DECREASED [None]
  - HAEMOGLOBIN DECREASED [None]
  - HAEMORRHAGE [None]
